FAERS Safety Report 5606453-5 (Version None)
Quarter: 2008Q1

REPORT INFORMATION
  Report Type: 
  Country: None (occurrence: None)
  Receive Date: 20080129
  Receipt Date: 20080125
  Transmission Date: 20080703
  Serious: Yes (Other)
  Sender: FDA-Public Use
  Company Number: A0687023A

PATIENT
  Age: 35 Year
  Sex: Female

DRUGS (12)
  1. ALLI [Suspect]
     Indication: WEIGHT LOSS DIET
     Route: 048
     Dates: start: 20070101
  2. HYDROCODONE BITARTRATE [Concomitant]
  3. LUNESTA [Concomitant]
  4. PLAQUENIL [Concomitant]
  5. ROBAXIN [Concomitant]
  6. GEODON [Concomitant]
  7. LAMICTAL [Concomitant]
  8. STARLIX [Concomitant]
  9. EFFEXOR XR [Concomitant]
  10. METFORMIN HCL [Concomitant]
  11. SPIRONOLACTONE [Concomitant]
  12. BYETTA [Concomitant]

REACTIONS (1)
  - SUICIDAL IDEATION [None]
